FAERS Safety Report 20471097 (Version 1)
Quarter: 2022Q1

REPORT INFORMATION
  Report Type: Spontaneous
  Country: US (occurrence: US)
  Receive Date: 20220214
  Receipt Date: 20220214
  Transmission Date: 20220423
  Serious: Yes (Other)
  Sender: FDA-Public Use
  Company Number: US-UCBSA-2022006691

PATIENT
  Age: 24 Year
  Sex: Female

DRUGS (6)
  1. KEPPRA [Suspect]
     Active Substance: LEVETIRACETAM
     Indication: Seizure
     Dosage: 1000 MILLIGRAM
     Route: 042
  2. KEPPRA [Suspect]
     Active Substance: LEVETIRACETAM
     Dosage: 2500 MILLIGRAM
     Route: 042
  3. MIDAZOLAM [Concomitant]
     Active Substance: MIDAZOLAM
     Indication: Partial seizures
  4. LORAZEPAM [Concomitant]
     Active Substance: LORAZEPAM
     Indication: Seizure
     Dosage: 2 MILLIGRAM
     Route: 042
  5. VALPROIC ACID [Concomitant]
     Active Substance: VALPROIC ACID
     Indication: Seizure
     Dosage: 2000 MILLIGRAM
  6. VALPROIC ACID [Concomitant]
     Active Substance: VALPROIC ACID
     Dosage: 250 MILLIGRAM, 3X/DAY (TID)

REACTIONS (2)
  - Clonic convulsion [Recovered/Resolved]
  - Seizure [Recovered/Resolved]
